FAERS Safety Report 9946855 (Version 1)
Quarter: 2014Q1

REPORT INFORMATION
  Report Type: Report from Study
  Country: US (occurrence: US)
  Receive Date: 20140303
  Receipt Date: 20140303
  Transmission Date: 20141002
  Serious: Yes (Other)
  Sender: FDA-Public Use
  Company Number: US-ABBVIE-13P-163-1060529-00

PATIENT
  Age: 52 Year
  Sex: Female

DRUGS (6)
  1. HUMIRA [Suspect]
     Indication: CROHN^S DISEASE
     Dates: start: 2007
  2. AZATHIOPRINE [Concomitant]
     Indication: CROHN^S DISEASE
  3. COLESTIPOL [Concomitant]
     Indication: CROHN^S DISEASE
  4. BUSPIRONE [Concomitant]
     Indication: CROHN^S DISEASE
  5. XANAX [Concomitant]
     Indication: ANXIETY
  6. AZITHROMYCIN [Concomitant]
     Indication: PRODUCT USED FOR UNKNOWN INDICATION
     Dates: start: 201302

REACTIONS (7)
  - Intestinal resection [Not Recovered/Not Resolved]
  - Incorrect dose administered [Unknown]
  - Device malfunction [Unknown]
  - Dyspepsia [Unknown]
  - Vomiting [Unknown]
  - Injection site pain [Unknown]
  - Injection site pain [Unknown]
